FAERS Safety Report 16748020 (Version 1)
Quarter: 2019Q3

REPORT INFORMATION
  Report Type: Spontaneous
  Country: US (occurrence: US)
  Receive Date: 20190827
  Receipt Date: 20190827
  Transmission Date: 20191005
  Serious: No
  Sender: FDA-Public Use
  Company Number: US-BAUSCH-BL-2019-022793

PATIENT
  Age: 29 Year
  Sex: Female
  Weight: 83.99 kg

DRUGS (14)
  1. MESTINON [Suspect]
     Active Substance: PYRIDOSTIGMINE BROMIDE
     Indication: PRODUCT USED FOR UNKNOWN INDICATION
     Route: 065
  2. FIRDAPSE [Suspect]
     Active Substance: AMIFAMPRIDINE
     Dosage: SPREAD OUT OF 3 DOSES PER DAY?G-TUBE
     Route: 048
     Dates: start: 201905, end: 201905
  3. LISINOPRIL. [Concomitant]
     Active Substance: LISINOPRIL
     Indication: PRODUCT USED FOR UNKNOWN INDICATION
  4. LEXAPRO [Concomitant]
     Active Substance: ESCITALOPRAM OXALATE
     Indication: PRODUCT USED FOR UNKNOWN INDICATION
  5. XANAX [Concomitant]
     Active Substance: ALPRAZOLAM
     Indication: PRODUCT USED FOR UNKNOWN INDICATION
     Dosage: 0.5 TO 1 TABLET TWICE OR THREE TIMES A DAY
  6. OMEPRAZOLE. [Concomitant]
     Active Substance: OMEPRAZOLE
     Indication: PRODUCT USED FOR UNKNOWN INDICATION
  7. FIRDAPSE [Suspect]
     Active Substance: AMIFAMPRIDINE
     Indication: MYASTHENIC SYNDROME
     Dosage: G-TUBE
     Route: 048
     Dates: start: 201905, end: 201905
  8. FIRDAPSE [Suspect]
     Active Substance: AMIFAMPRIDINE
     Dosage: G-TUBE
     Route: 048
     Dates: start: 201905, end: 201905
  9. FIRDAPSE [Suspect]
     Active Substance: AMIFAMPRIDINE
     Dosage: SPREAD OUT OF 3 DOSES PER DAY ?G-TUBE
     Route: 048
     Dates: start: 201905, end: 201905
  10. FIRDAPSE [Suspect]
     Active Substance: AMIFAMPRIDINE
     Dosage: SPREAD OUT OF 3 DOSES PER DAY?G-TUBE
     Route: 048
     Dates: start: 201905, end: 201905
  11. VITAMIN D3 [Concomitant]
     Active Substance: CHOLECALCIFEROL
     Indication: PRODUCT USED FOR UNKNOWN INDICATION
  12. MACROBID [Suspect]
     Active Substance: NITROFURANTOIN\NITROFURANTOIN MONOHYDRATE
     Indication: PRODUCT USED FOR UNKNOWN INDICATION
     Route: 065
  13. NEURONTIN [Concomitant]
     Active Substance: GABAPENTIN
     Indication: PRODUCT USED FOR UNKNOWN INDICATION
  14. FIRDAPSE [Suspect]
     Active Substance: AMIFAMPRIDINE
     Dosage: STOP DATE: 24/MAY/2019 (ALSO REPORTED AS END OF LAST WEEK TO 30/MAY/2019)?G-TUBE
     Route: 048
     Dates: start: 201905, end: 201905

REACTIONS (7)
  - Drug hypersensitivity [Unknown]
  - Peripheral swelling [Unknown]
  - Palmar erythema [Unknown]
  - Migraine [Unknown]
  - Pruritus generalised [Recovered/Resolved]
  - Hypertension [Unknown]
  - Urticaria [Recovered/Resolved]

NARRATIVE: CASE EVENT DATE: 201905
